FAERS Safety Report 9552825 (Version 1)
Quarter: 2013Q3

REPORT INFORMATION
  Report Type: Spontaneous
  Country: US (occurrence: None)
  Receive Date: 20130724
  Receipt Date: 20130724
  Transmission Date: 20140515
  Serious: No
  Sender: FDA-Public Use
  Company Number: PHHY2013US024995

PATIENT
  Sex: Female

DRUGS (10)
  1. GILENYA (FINGOLIMOD) CAPSULE, 0.5MG [Suspect]
     Indication: MULTIPLE SCLEROSIS
     Route: 048
     Dates: start: 20121109
  2. CYMBALTA (DULOXETINE HYDROCHLORIDE) [Concomitant]
  3. ALLEGRA [Concomitant]
  4. ESTRADERM (ESTRADIOL) [Concomitant]
  5. TRAZODONE [Concomitant]
  6. LORAZEPAM [Concomitant]
  7. LAMICTAL (LAMOTRIGINE) [Concomitant]
  8. BUPROPION [Concomitant]
  9. MULTIVITAMINS (ASCORBIC ACID, ERGOCALCIFEROL, FOLIC ACID, NICOTINAMIDE, PANTHENOL, RETINOL, RIBOFLAVIN, THIAMINE HYDROCHLORIDE) [Concomitant]
  10. VITAMIN D3 (COLECALCIFEROL) [Concomitant]

REACTIONS (7)
  - Oropharyngeal pain [None]
  - Dry throat [None]
  - Throat irritation [None]
  - Ear discomfort [None]
  - Lacrimation increased [None]
  - Nasal congestion [None]
  - Malaise [None]
